FAERS Safety Report 8154121-0 (Version None)
Quarter: 2012Q1

REPORT INFORMATION
  Report Type: 
  Country: None (occurrence: None)
  Receive Date: 20120221
  Receipt Date: 20120213
  Transmission Date: 20120608
  Serious: Yes (Other)
  Sender: FDA-Public Use
  Company Number: CA-ELI_LILLY_AND_COMPANY-CA201202003986

PATIENT
  Sex: Male

DRUGS (5)
  1. BISOPROLOL FUMARATE [Concomitant]
     Dosage: 2.5 MG, QD
  2. ASPIRIN [Concomitant]
     Dosage: 81 MG, QD
  3. PERINDOPRIL [Concomitant]
     Dosage: 8 MG, QD
  4. CRESTOR [Concomitant]
     Dosage: 10 MG, QD
  5. CIALIS [Suspect]
     Dosage: 20 MG, WEEKLY (1/W)
     Dates: start: 20070101

REACTIONS (3)
  - FATIGUE [None]
  - VASCULAR GRAFT [None]
  - DRUG INEFFECTIVE [None]
